FAERS Safety Report 23557946 (Version 1)
Quarter: 2024Q1

REPORT INFORMATION
  Report Type: Spontaneous
  Country: SA (occurrence: SA)
  Receive Date: 20240223
  Receipt Date: 20240223
  Transmission Date: 20240410
  Serious: Yes (Life-Threatening, Other)
  Sender: FDA-Public Use
  Company Number: SA-MACLEODS PHARMACEUTICALS US LTD-MAC2024045975

PATIENT

DRUGS (5)
  1. ARIPIPRAZOLE [Suspect]
     Active Substance: ARIPIPRAZOLE
     Indication: Schizophrenia
     Dosage: 10 MILLIGRAM, QD
     Route: 048
  2. OLANZAPINE [Suspect]
     Active Substance: OLANZAPINE
     Indication: Schizophrenia
     Dosage: 5 MILLIGRAM, QD (AT NIGHT)
     Route: 065
  3. HALOPERIDOL [Suspect]
     Active Substance: HALOPERIDOL
     Indication: Schizophrenia
     Dosage: 5 MILLIGRAM, QD (INJECTION)
     Route: 030
  4. HALOPERIDOL [Suspect]
     Active Substance: HALOPERIDOL
     Dosage: 20 MILLIGRAM, QD (IN DIVIDED DOSES)
     Route: 048
  5. LORAZEPAM [Concomitant]
     Active Substance: LORAZEPAM
     Indication: Product used for unknown indication
     Dosage: 2 MILLIGRAM (INJECTION)
     Route: 030

REACTIONS (2)
  - Spasmodic dysphonia [Recovered/Resolved]
  - Respiratory distress [Recovered/Resolved]
